FAERS Safety Report 23901559 (Version 3)
Quarter: 2024Q2

REPORT INFORMATION
  Report Type: Report from Study
  Country: JP (occurrence: JP)
  Receive Date: 20240526
  Receipt Date: 20240612
  Transmission Date: 20240716
  Serious: Yes (Other)
  Sender: FDA-Public Use
  Company Number: JP-SA-2024SA152681

PATIENT
  Sex: Female

DRUGS (2)
  1. DOCETAXEL [Suspect]
     Active Substance: DOCETAXEL\DOCETAXEL ANHYDROUS
     Indication: Head and neck cancer stage IV
     Dosage: 40 MG, QW
     Route: 013
  2. CISPLATIN [Concomitant]
     Active Substance: CISPLATIN
     Indication: Head and neck cancer stage IV
     Dosage: 100 MG, QW
     Route: 013

REACTIONS (2)
  - Blindness [Unknown]
  - Off label use [Unknown]
